FAERS Safety Report 14263099 (Version 2)
Quarter: 2018Q1

REPORT INFORMATION
  Report Type: Report from Study
  Country: DE (occurrence: DE)
  Receive Date: 20171208
  Receipt Date: 20180103
  Transmission Date: 20180508
  Serious: Yes (Death, Hospitalization, Other)
  Sender: FDA-Public Use
  Company Number: DE-INCYTE CORPORATION-2017IN010489

PATIENT

DRUGS (14)
  1. PANTOZOL [Concomitant]
     Active Substance: PANTOPRAZOLE SODIUM
     Indication: PROPHYLAXIS
     Dosage: 20 MG, UNK
     Route: 065
     Dates: start: 20150908, end: 20161006
  2. MCP [Concomitant]
     Active Substance: METOCLOPRAMIDE HYDROCHLORIDE
     Indication: NAUSEA
     Dosage: 30 MG, UNK
     Route: 065
     Dates: start: 20160704, end: 20161006
  3. EPOETIN ALFA [Concomitant]
     Active Substance: ERYTHROPOIETIN
     Indication: ANAEMIA
     Dosage: 20000 IU, UNK
     Route: 065
     Dates: start: 20170119, end: 20170531
  4. LITALIR [Concomitant]
     Active Substance: HYDROXYUREA
     Indication: HYPERPLASIA
     Dosage: 200 MG, UNK
     Route: 065
     Dates: start: 20160704, end: 20161117
  5. DEKRISTOL [Concomitant]
     Active Substance: CHOLECALCIFEROL
     Indication: VITAMIN SUPPLEMENTATION
     Dosage: 20000 IU, UNK
     Route: 065
     Dates: start: 20150908, end: 20170704
  6. VALPROATE [Concomitant]
     Active Substance: VALPROIC ACID
     Indication: ANTIDEPRESSANT THERAPY
     Dosage: 600 MG, UNK
     Route: 065
     Dates: start: 20151020, end: 20160412
  7. INCB018424 [Suspect]
     Active Substance: RUXOLITINIB
     Dosage: 40 MG, QD
     Route: 048
     Dates: start: 20160704, end: 20170703
  8. RAMIPRIL. [Concomitant]
     Active Substance: RAMIPRIL
     Indication: CARDIAC FAILURE
     Dosage: 2.5/12.5
     Route: 065
     Dates: start: 20150908, end: 20170704
  9. MAGNETRANS [Concomitant]
     Indication: MINERAL SUPPLEMENTATION
     Dosage: 300 MG, UNK
     Route: 065
     Dates: start: 20150908, end: 20170704
  10. ASPIRIN. [Concomitant]
     Active Substance: ASPIRIN
     Indication: CARDIAC FAILURE
     Dosage: 100 MG, UNK
     Route: 065
     Dates: start: 20150929, end: 20161006
  11. CLEXANE [Concomitant]
     Active Substance: ENOXAPARIN SODIUM
     Indication: DEEP VEIN THROMBOSIS
     Dosage: 120 MG, QD
     Route: 065
     Dates: start: 20161205, end: 20161217
  12. MORPHANTON [Concomitant]
     Indication: PAIN
     Dosage: 20 MG, UNK
     Route: 065
     Dates: start: 20170314, end: 20170418
  13. INCB018424 [Suspect]
     Active Substance: RUXOLITINIB
     Indication: PRIMARY MYELOFIBROSIS
     Dosage: 20 MG, QD
     Route: 048
     Dates: start: 20160128
  14. CLEXANE [Concomitant]
     Active Substance: ENOXAPARIN SODIUM
     Indication: THROMBOSIS PROPHYLAXIS
     Dosage: 120 MG, UNK
     Route: 065
     Dates: start: 20161218, end: 20170704

REACTIONS (5)
  - Deep vein thrombosis [Unknown]
  - Iron overload [Not Recovered/Not Resolved]
  - Thrombocytopenia [Fatal]
  - Syncope [Fatal]
  - Pulmonary embolism [Fatal]

NARRATIVE: CASE EVENT DATE: 20161205
